FAERS Safety Report 20740726 (Version 9)
Quarter: 2023Q1

REPORT INFORMATION
  Report Type: Report from Study
  Country: JP (occurrence: None)
  Receive Date: 20220422
  Receipt Date: 20230303
  Transmission Date: 20230418
  Serious: Yes (Hospitalization)
  Sender: FDA-Public Use
  Company Number: JP-ROCHE-3080705

PATIENT
  Age: 72 Year
  Sex: Male

DRUGS (10)
  1. CABOZANTINIB [Suspect]
     Active Substance: CABOZANTINIB
     Indication: Hormone-refractory prostate cancer
     Dosage: ON 10/APR/2022 PATIENT RECEIVED THE MOST RECENT DOSE OF XL184 PRIOR TO THE AE
     Route: 048
     Dates: start: 20220329, end: 20220410
  2. ATEZOLIZUMAB [Suspect]
     Active Substance: ATEZOLIZUMAB
     Indication: Hormone-refractory prostate cancer
     Dosage: ON 29/MAR/2022 THE PATIENT RECEIVED THE MOST RECENT DOSE OF ATEZOLIZUMAB PRIOR TO THE AE
     Route: 041
     Dates: start: 20220329, end: 20220630
  3. ATEZOLIZUMAB [Suspect]
     Active Substance: ATEZOLIZUMAB
     Route: 041
     Dates: start: 20220519
  4. ATEZOLIZUMAB [Suspect]
     Active Substance: ATEZOLIZUMAB
     Route: 041
     Dates: start: 20220609, end: 20220609
  5. COMIRNATY [Concomitant]
     Active Substance: TOZINAMERAN
     Dates: start: 20220316, end: 20220316
  6. CHEWABLE C [Concomitant]
     Dates: start: 20220202
  7. LEUPROLIDE ACETATE [Concomitant]
     Active Substance: LEUPROLIDE ACETATE
     Dates: start: 20210928, end: 20220315
  8. RIVAROXABAN [Concomitant]
     Active Substance: RIVAROXABAN
     Dates: start: 20190509
  9. CALCIUM CARBONATE\CHOLECALCIFEROL\MAGNESIUM CARBONATE [Concomitant]
     Active Substance: CALCIUM CARBONATE\CHOLECALCIFEROL\MAGNESIUM CARBONATE
     Dates: start: 20220202
  10. DENOSUMAB [Concomitant]
     Active Substance: DENOSUMAB
     Dates: start: 20210202

REACTIONS (3)
  - Hyponatraemia [Recovering/Resolving]
  - Pyrexia [Recovered/Resolved]
  - Embolic cerebral infarction [Recovered/Resolved with Sequelae]

NARRATIVE: CASE EVENT DATE: 20220411
